FAERS Safety Report 16665199 (Version 1)
Quarter: 2019Q3

REPORT INFORMATION
  Report Type: Spontaneous
  Country: US (occurrence: US)
  Receive Date: 20190803
  Receipt Date: 20190803
  Transmission Date: 20191004
  Serious: Yes (Other)
  Sender: FDA-Public Use
  Company Number: US-ACCORD-114867

PATIENT
  Age: 65 Year
  Sex: Female
  Weight: 81.65 kg

DRUGS (14)
  1. TRASTUZUMAB. [Suspect]
     Active Substance: TRASTUZUMAB
     Indication: BREAST CANCER RECURRENT
     Dates: start: 20140114, end: 20140319
  2. FUROSEMIDE. [Concomitant]
     Active Substance: FUROSEMIDE
  3. DEXILANT [Concomitant]
     Active Substance: DEXLANSOPRAZOLE
  4. ALLOPURINOL. [Concomitant]
     Active Substance: ALLOPURINOL
  5. COLCRYS [Concomitant]
     Active Substance: COLCHICINE
  6. HYDROCODONE [Concomitant]
     Active Substance: HYDROCODONE
  7. DOCETAXEL ACCORD [Suspect]
     Active Substance: DOCETAXEL
     Indication: BREAST CANCER RECURRENT
     Dates: start: 20140114, end: 20140319
  8. LANTUS [Concomitant]
     Active Substance: INSULIN GLARGINE
  9. PARAPLATIN [Suspect]
     Active Substance: CARBOPLATIN
     Indication: BREAST CANCER RECURRENT
     Dates: start: 20140114, end: 20140319
  10. MAGNESIUM OXIDE. [Concomitant]
     Active Substance: MAGNESIUM OXIDE
  11. ROPINIROLE/ROPINIROLE HYDROCHLORIDE [Concomitant]
  12. LEVOTHYROXINE. [Concomitant]
     Active Substance: LEVOTHYROXINE
  13. PROMETHAZINE [Concomitant]
     Active Substance: PROMETHAZINE HYDROCHLORIDE
  14. TAMOXIFEN [Concomitant]
     Active Substance: TAMOXIFEN
     Dates: start: 20120701

REACTIONS (1)
  - Alopecia [Not Recovered/Not Resolved]

NARRATIVE: CASE EVENT DATE: 201409
